FAERS Safety Report 12466542 (Version 3)
Quarter: 2017Q2

REPORT INFORMATION
  Report Type: Spontaneous
  Country: US (occurrence: US)
  Receive Date: 20160615
  Receipt Date: 20170504
  Transmission Date: 20170830
  Serious: No
  Sender: FDA-Public Use
  Company Number: US-BAUSCH-BL-2016-010912

PATIENT
  Age: 63 Year
  Sex: Female

DRUGS (4)
  1. ZYCLARA [Suspect]
     Active Substance: IMIQUIMOD
     Dosage: NIGHTLY BEFORE BEDTIME
     Route: 061
     Dates: start: 20160329, end: 20160331
  2. ZYCLARA [Suspect]
     Active Substance: IMIQUIMOD
     Indication: ACTINIC KERATOSIS
     Dosage: NIGHTLY BEFORE BEDTIME
     Route: 061
     Dates: start: 20160312, end: 20160319
  3. ZYCLARA [Suspect]
     Active Substance: IMIQUIMOD
     Dosage: NIGHTLY BEFORE BEDTIME
     Route: 061
     Dates: start: 20160320, end: 20160324
  4. GABAPENTIN. [Concomitant]
     Active Substance: GABAPENTIN
     Indication: PRODUCT USED FOR UNKNOWN INDICATION
     Dosage: NIGHTLY
     Route: 048

REACTIONS (5)
  - Application site discomfort [Recovering/Resolving]
  - Abdominal pain [Recovering/Resolving]
  - Application site pain [Recovering/Resolving]
  - Herpes zoster [Recovering/Resolving]
  - Local swelling [Unknown]

NARRATIVE: CASE EVENT DATE: 201604
